FAERS Safety Report 4762261-9 (Version None)
Quarter: 2005Q3

REPORT INFORMATION
  Report Type: 
  Country: None (occurrence: None)
  Receive Date: 20050907
  Receipt Date: 20050830
  Transmission Date: 20060218
  Serious: Yes (Hospitalization)
  Sender: FDA-Public Use
  Company Number: JP-SP-2005-01712

PATIENT
  Age: 56 Year
  Sex: Male

DRUGS (2)
  1. IMMUCYST [Suspect]
     Indication: BLADDER CANCER
     Route: 043
     Dates: start: 20050716, end: 20050820
  2. IMMUCYST [Suspect]
     Route: 043
     Dates: start: 20050716, end: 20050820

REACTIONS (4)
  - INFLAMMATION [None]
  - PYREXIA [None]
  - PYURIA [None]
  - SEPSIS [None]
